FAERS Safety Report 23821143 (Version 1)
Quarter: 2024Q2

REPORT INFORMATION
  Report Type: Other
  Country: FI (occurrence: FI)
  Receive Date: 20240506
  Receipt Date: 20240506
  Transmission Date: 20240715
  Serious: Yes (Disabling, Other)
  Sender: FDA-Public Use
  Company Number: FI-Ironshore Pharmaceuticals Inc.-IRON20240870

PATIENT
  Age: 26 Year
  Sex: Female

DRUGS (1)
  1. METHYLPHENIDATE [Suspect]
     Active Substance: METHYLPHENIDATE
     Indication: Attention deficit hyperactivity disorder
     Dosage: UNKNOWN
     Route: 042

REACTIONS (3)
  - Retinopathy [Unknown]
  - Histiocytosis [Recovering/Resolving]
  - Intentional product misuse [Recovering/Resolving]
